FAERS Safety Report 8938433 (Version 4)
Quarter: 2015Q4

REPORT INFORMATION
  Report Type: Report from Study
  Country: CA (occurrence: CA)
  Receive Date: 20121203
  Receipt Date: 20151224
  Transmission Date: 20160305
  Serious: Yes (Other)
  Sender: FDA-Public Use
  Company Number: PHHY2012CA109770

PATIENT
  Age: 24 Year
  Sex: Male

DRUGS (3)
  1. GILENYA [Suspect]
     Active Substance: FINGOLIMOD HYDROCHLORIDE
     Dosage: UNK
     Route: 048
     Dates: start: 20141020, end: 201410
  2. GILENYA [Suspect]
     Active Substance: FINGOLIMOD HYDROCHLORIDE
     Dosage: 0.5 MG, QOD
     Route: 048
  3. GILENYA [Suspect]
     Active Substance: FINGOLIMOD HYDROCHLORIDE
     Indication: RELAPSING-REMITTING MULTIPLE SCLEROSIS
     Dosage: 0.5 MG, QD
     Route: 048
     Dates: start: 20110926

REACTIONS (5)
  - Bundle branch block right [Recovering/Resolving]
  - Conduction disorder [Recovering/Resolving]
  - QRS axis abnormal [Recovering/Resolving]
  - Intentional underdose [Unknown]
  - Electrocardiogram T wave inversion [Recovering/Resolving]

NARRATIVE: CASE EVENT DATE: 20111128
